FAERS Safety Report 8115420-1 (Version None)
Quarter: 2012Q1

REPORT INFORMATION
  Report Type: 
  Country: None (occurrence: None)
  Receive Date: 20120201
  Receipt Date: 20120117
  Transmission Date: 20120608
  Serious: Yes (Life-Threatening, Other)
  Sender: FDA-Public Use
  Company Number: US-2012-10065

PATIENT
  Age: 40 Year
  Sex: Male

DRUGS (2)
  1. SAMSCA [Suspect]
  2. ALBUMIN (HUMAN) [Concomitant]

REACTIONS (1)
  - POLYURIA [None]
